FAERS Safety Report 12835185 (Version 1)
Quarter: 2016Q4

REPORT INFORMATION
  Report Type: Spontaneous
  Country: US (occurrence: US)
  Receive Date: 20161011
  Receipt Date: 20161011
  Transmission Date: 20170207
  Serious: No
  Sender: FDA-Public Use
  Company Number: US-TAIHO ONCOLOGY INC-EU-2016-02030

PATIENT
  Sex: Male
  Weight: 92.62 kg

DRUGS (1)
  1. LONSURF [Suspect]
     Active Substance: TIPIRACIL HYDROCHLORIDE\TRIFLURIDINE
     Indication: RECTAL CANCER
     Dosage: CYCLE 2
     Route: 048
     Dates: start: 20160721

REACTIONS (11)
  - Functional gastrointestinal disorder [Unknown]
  - Fatigue [Unknown]
  - Dehydration [Recovered/Resolved]
  - Haemoptysis [Unknown]
  - Diarrhoea [Unknown]
  - Blood urine present [Unknown]
  - Drug intolerance [Unknown]
  - Carcinoembryonic antigen increased [Unknown]
  - Disease progression [Unknown]
  - Malaise [Unknown]
  - Asthenia [Unknown]

NARRATIVE: CASE EVENT DATE: 2016
